FAERS Safety Report 9412347 (Version 2)
Quarter: 2016Q3

REPORT INFORMATION
  Report Type: Spontaneous
  Country: IE (occurrence: IE)
  Receive Date: 20130722
  Receipt Date: 20160920
  Transmission Date: 20161109
  Serious: Yes (Other)
  Sender: FDA-Public Use
  Company Number: IE-PFIZER INC-2013210167

PATIENT
  Age: 62 Year
  Sex: Male

DRUGS (1)
  1. SUTENT [Suspect]
     Active Substance: SUNITINIB MALATE
     Indication: GASTROINTESTINAL STROMAL TUMOUR
     Dosage: 37.5 MG, CYCLIC (4/2)
     Dates: start: 20130513, end: 20130902

REACTIONS (4)
  - Vomiting [Unknown]
  - Tumour pain [Unknown]
  - Nausea [Unknown]
  - Blood pressure increased [Unknown]
